FAERS Safety Report 4511507-0 (Version None)
Quarter: 2004Q4

REPORT INFORMATION
  Report Type: 
  Country: None (occurrence: None)
  Receive Date: 20041129
  Receipt Date: 20040903
  Transmission Date: 20050328
  Serious: No
  Sender: FDA-Public Use
  Company Number: US-BRISTOL-MYERS SQUIBB COMPANY-12693172

PATIENT
  Age: 37 Year
  Sex: Male
  Weight: 76 kg

DRUGS (9)
  1. ABILIFY [Suspect]
     Indication: POST-TRAUMATIC STRESS DISORDER
     Route: 048
     Dates: start: 20040805
  2. ABILIFY [Suspect]
     Indication: ALCOHOLISM
     Route: 048
     Dates: start: 20040805
  3. ABILIFY [Suspect]
     Indication: ANGER
     Route: 048
     Dates: start: 20040805
  4. BISACODYL [Concomitant]
  5. SALAZOPYRIN [Concomitant]
  6. DOCUSATE [Concomitant]
  7. NORTRIPTYLINE HCL [Concomitant]
  8. TRAZODONE HCL [Concomitant]
  9. ACETAMINOPHEN AND CODEINE PHOSPHATE [Concomitant]

REACTIONS (2)
  - BLOOD BILIRUBIN INCREASED [None]
  - COGWHEEL RIGIDITY [None]
